FAERS Safety Report 19277500 (Version 2)
Quarter: 2021Q3

REPORT INFORMATION
  Report Type: Report from Study
  Country: US (occurrence: US)
  Receive Date: 20210520
  Receipt Date: 20210806
  Transmission Date: 20211014
  Serious: Yes (Other)
  Sender: FDA-Public Use
  Company Number: US-EMD SERONO-9123627

PATIENT
  Sex: Male

DRUGS (1)
  1. REBIF [Suspect]
     Active Substance: INTERFERON BETA-1A
     Indication: PRODUCT USED FOR UNKNOWN INDICATION
     Dosage: PREVIOUSLY REBIJECT II
     Route: 058
     Dates: start: 20140201

REACTIONS (3)
  - Orthognathic surgery [Recovering/Resolving]
  - Erectile dysfunction [Unknown]
  - Gingival disorder [Unknown]
